FAERS Safety Report 7645167-7 (Version None)
Quarter: 2011Q3

REPORT INFORMATION
  Report Type: 
  Country: None (occurrence: None)
  Receive Date: 20110729
  Receipt Date: 20110720
  Transmission Date: 20111222
  Serious: Yes (Other)
  Sender: FDA-Public Use
  Company Number: US-ASTRAZENECA-2008UW10382

PATIENT
  Age: 37 Year
  Sex: Male
  Weight: 90.7 kg

DRUGS (13)
  1. SEROQUEL [Suspect]
     Route: 048
     Dates: start: 20020801
  2. SEROQUEL [Suspect]
     Indication: SCHIZOPHRENIA
     Route: 048
     Dates: start: 20020801, end: 20040501
  3. PAXIL [Concomitant]
     Dates: start: 20020101
  4. SEROQUEL [Suspect]
     Dosage: 100 MG, 200 MG, 300 MG
     Route: 048
     Dates: start: 20041001, end: 20070501
  5. SEROQUEL [Suspect]
     Dosage: 100 MG, 200 MG, 300 MG
     Route: 048
     Dates: start: 20041001, end: 20070501
  6. ABILIFY [Concomitant]
     Dates: start: 20040101
  7. PROZAC [Concomitant]
     Dates: start: 20050101
  8. RISPERDAL [Concomitant]
     Dates: start: 20020101
  9. ZYPREXA [Concomitant]
     Dates: start: 20050101
  10. GEODON [Concomitant]
  11. ZOLOFT [Concomitant]
     Dates: start: 20070101
  12. SEROQUEL [Suspect]
     Indication: DEPRESSION
     Route: 048
     Dates: start: 20020801, end: 20040501
  13. SEROQUEL [Suspect]
     Route: 048
     Dates: start: 20020801

REACTIONS (8)
  - HYPERGLYCAEMIA [None]
  - MYOCARDIAL INFARCTION [None]
  - BLOOD CHOLESTEROL INCREASED [None]
  - HYPERTENSION [None]
  - TYPE 2 DIABETES MELLITUS [None]
  - SPLEEN DISORDER [None]
  - CHEST PAIN [None]
  - HYPERLIPIDAEMIA [None]
